FAERS Safety Report 13234027 (Version 1)
Quarter: 2017Q1

REPORT INFORMATION
  Report Type: Spontaneous
  Country: US (occurrence: None)
  Receive Date: 20170214
  Receipt Date: 20170214
  Transmission Date: 20170428
  Serious: No
  Sender: FDA-Public Use
  Company Number: MFGFEI-2017-00001

PATIENT

DRUGS (1)
  1. NITROUS OXIDE. [Suspect]
     Active Substance: NITROUS OXIDE

REACTIONS (2)
  - Device use error [None]
  - Device leakage [None]

NARRATIVE: CASE EVENT DATE: 20170118
